FAERS Safety Report 7964379-6 (Version None)
Quarter: 2011Q4

REPORT INFORMATION
  Report Type: 
  Country: None (occurrence: None)
  Receive Date: 20111208
  Receipt Date: 20111205
  Transmission Date: 20120403
  Serious: Yes (Other)
  Sender: FDA-Public Use
  Company Number: BR-PFIZER INC-2011296317

PATIENT
  Sex: Male
  Weight: 120 kg

DRUGS (1)
  1. LYRICA [Suspect]
     Indication: NEURALGIA
     Dosage: 150 MG (ONE CAPSULE), 3X/DAY
     Route: 048
     Dates: start: 20111001

REACTIONS (2)
  - MENTAL IMPAIRMENT [None]
  - MEMORY IMPAIRMENT [None]
